FAERS Safety Report 11037252 (Version 1)
Quarter: 2015Q2

REPORT INFORMATION
  Report Type: Spontaneous
  Country: US (occurrence: US)
  Receive Date: 20150416
  Receipt Date: 20150416
  Transmission Date: 20150821
  Serious: No
  Sender: FDA-Public Use
  Company Number: US-PFIZER INC-2015124538

PATIENT
  Age: 66 Year
  Sex: Male

DRUGS (3)
  1. ASA [Suspect]
     Active Substance: ASPIRIN
  2. NEURONTIN [Suspect]
     Active Substance: GABAPENTIN
     Indication: NEURALGIA
     Dosage: 600 MG, 3X/DAY (TAKE 2 CAPS BY MOUTH 3 TIMES DAILY)
     Route: 048
     Dates: start: 20150204
  3. NEURONTIN [Suspect]
     Active Substance: GABAPENTIN
     Indication: PAIN IN EXTREMITY
     Dosage: 300 MG, AS NEEDED (TAKE 1 TO 2 CAPS BY MOUTH 3 TIMES DAILY AS NEEDED )
     Route: 048
     Dates: start: 20140617

REACTIONS (1)
  - Drug hypersensitivity [Unknown]
